FAERS Safety Report 9686764 (Version 2)
Quarter: 2013Q4

REPORT INFORMATION
  Report Type: Spontaneous
  Country: US (occurrence: US)
  Receive Date: 20131113
  Receipt Date: 20131212
  Transmission Date: 20140711
  Serious: Yes (Other)
  Sender: FDA-Public Use
  Company Number: CHPA2013US017007

PATIENT
  Sex: Female

DRUGS (5)
  1. PREVACID 24HR 15MG [Suspect]
     Indication: GASTROOESOPHAGEAL REFLUX DISEASE
     Dosage: 15 MG, BID
     Route: 048
     Dates: start: 2009
  2. PREVACID 24HR 15MG [Suspect]
     Indication: OFF LABEL USE
  3. PREVACID 24HR 15MG [Suspect]
     Indication: OFF LABEL USE
  4. ANTIBIOTICS [Suspect]
     Indication: GASTROOESOPHAGEAL REFLUX DISEASE
     Dosage: UNK, UNK
  5. ANTIBIOTICS [Suspect]
     Indication: HIATUS HERNIA

REACTIONS (4)
  - Speech disorder [Not Recovered/Not Resolved]
  - Gastrooesophageal reflux disease [Unknown]
  - Condition aggravated [Unknown]
  - Incorrect drug administration duration [Unknown]
